FAERS Safety Report 10259875 (Version 3)
Quarter: 2018Q2

REPORT INFORMATION
  Report Type: Spontaneous
  Country: CA (occurrence: CA)
  Receive Date: 20140625
  Receipt Date: 20180511
  Transmission Date: 20180711
  Serious: Yes (Hospitalization, Other)
  Sender: FDA-Public Use
  Company Number: CA-MERCK-1406CAN011382

PATIENT
  Age: 33 Year
  Sex: Female

DRUGS (2)
  1. SINGULAIR [Suspect]
     Active Substance: MONTELUKAST SODIUM
     Indication: ASTHMA
     Dosage: 10 MG, QD
     Route: 048
     Dates: start: 201307, end: 20180309
  2. LEVAQUIN [Suspect]
     Active Substance: LEVOFLOXACIN
     Dosage: 250 MG, TID
     Route: 065
     Dates: end: 201406

REACTIONS (6)
  - Nervous system disorder [Recovered/Resolved]
  - Cystic fibrosis [Recovering/Resolving]
  - Adverse event [Recovered/Resolved]
  - Adverse drug reaction [Recovered/Resolved]
  - Lung transplant [Recovering/Resolving]
  - Mental impairment [Recovered/Resolved]

NARRATIVE: CASE EVENT DATE: 20140618
